FAERS Safety Report 9187398 (Version 2)
Quarter: 2013Q2

REPORT INFORMATION
  Report Type: Spontaneous
  Country: GB (occurrence: GB)
  Receive Date: 20130325
  Receipt Date: 20130506
  Transmission Date: 20140414
  Serious: Yes (Hospitalization, Other)
  Sender: FDA-Public Use
  Company Number: GB-ASTRAZENECA-2013SE17499

PATIENT
  Sex: Male

DRUGS (6)
  1. BRILIQUE [Suspect]
     Indication: ACUTE MYOCARDIAL INFARCTION
     Route: 048
  2. BRILIQUE [Suspect]
     Indication: ACUTE MYOCARDIAL INFARCTION
     Route: 048
     Dates: start: 20130302, end: 20130313
  3. ASPIRIN [Concomitant]
     Indication: ACUTE MYOCARDIAL INFARCTION
     Route: 048
     Dates: start: 20130302
  4. ATORVASTATIN [Concomitant]
     Route: 048
  5. EPLERENONE [Concomitant]
     Route: 048
     Dates: start: 20130303
  6. PERINDOPRIL [Concomitant]
     Route: 048
     Dates: start: 20130302

REACTIONS (4)
  - Intracardiac thrombus [Unknown]
  - Acute myocardial infarction [Unknown]
  - Cerebrovascular accident [Unknown]
  - Cerebellar infarction [Unknown]
